FAERS Safety Report 13796742 (Version 1)
Quarter: 2017Q3

REPORT INFORMATION
  Report Type: Spontaneous
  Country: US (occurrence: US)
  Receive Date: 20170726
  Receipt Date: 20170726
  Transmission Date: 20171127
  Serious: No
  Sender: FDA-Public Use
  Company Number: US-AMGEN-USASP2017106478

PATIENT
  Age: 56 Year
  Sex: Male

DRUGS (3)
  1. KYPROLIS [Suspect]
     Active Substance: CARFILZOMIB
     Indication: PLASMA CELL MYELOMA
     Dosage: 20 MG/M2, UNK ON DAY 2 AND 3
     Route: 065
  2. DARZALEX [Suspect]
     Active Substance: DARATUMUMAB
     Indication: PLASMA CELL MYELOMA
     Dosage: UNK, ON DAY 1
     Route: 065
  3. KYPROLIS [Suspect]
     Active Substance: CARFILZOMIB
     Dosage: 56 MG/M2, UNK ON DAY 8
     Route: 065
     Dates: start: 20170712

REACTIONS (1)
  - Off label use [Unknown]
